FAERS Safety Report 8791819 (Version 2)
Quarter: 2013Q1

REPORT INFORMATION
  Report Type: Spontaneous
  Country: US (occurrence: US)
  Receive Date: 20120918
  Receipt Date: 20130314
  Transmission Date: 20140127
  Serious: Yes (Hospitalization, Other)
  Sender: FDA-Public Use
  Company Number: US-PFIZER INC-2012226060

PATIENT
  Age: 72 Year
  Sex: Female
  Weight: 74.83 kg

DRUGS (13)
  1. EFFEXOR XR [Suspect]
     Indication: DEPRESSION
     Dosage: 75 MG, 3X/DAY
     Route: 048
  2. VENLAFAXINE HYDROCHLORIDE [Suspect]
     Indication: DEPRESSION
     Dosage: UNK
     Dates: start: 2013
  3. BUPROPION [Concomitant]
     Dosage: 75 MG DAILY
  4. LISINOPRIL [Concomitant]
     Dosage: 20 MG, DAILY
  5. LEVOTHYROXINE [Concomitant]
     Dosage: 50 UG, DAILY
  6. OMEPRAZOLE [Concomitant]
     Dosage: 20 MG, DAILY
  7. VITAMIN D [Concomitant]
     Dosage: 500 IU, DAILY
  8. CALCIUM WITH VITAMIN D [Concomitant]
     Dosage: 600 MG/400 IU, 2X/DAY
  9. CHONDROITIN/GLUCOSAMINE/METHYLSULFONYLMETHANE [Concomitant]
     Dosage: 1500G/500G DAILY
  10. FISH OIL [Concomitant]
     Dosage: 2 G, DAILY
  11. STOOL SOFTENER [Concomitant]
     Dosage: 100 MG  DAILY
  12. POLYETHYLENE GLYCOL [Concomitant]
     Dosage: UNK, AS NEEDED
  13. AVASTIN [Concomitant]
     Dosage: UNK

REACTIONS (13)
  - Chondropathy [Unknown]
  - Fall [Recovering/Resolving]
  - Nerve compression [Unknown]
  - Arthralgia [Recovering/Resolving]
  - Scoliosis [Unknown]
  - Drug ineffective [Unknown]
  - Activities of daily living impaired [Unknown]
  - Drug withdrawal syndrome [Unknown]
  - Nightmare [Unknown]
  - Tremor [Unknown]
  - Insomnia [Unknown]
  - Nervousness [Unknown]
  - Emotional disorder [Unknown]
